FAERS Safety Report 7843394-7 (Version None)
Quarter: 2011Q4

REPORT INFORMATION
  Report Type: 
  Country: None (occurrence: None)
  Receive Date: 20111025
  Receipt Date: 20111018
  Transmission Date: 20120403
  Serious: Yes (Hospitalization)
  Sender: FDA-Public Use
  Company Number: SE-B.I. PHARMACEUTICALS,INC./RIDGEFIELD-2011-SW-00425SW

PATIENT
  Sex: Male

DRUGS (11)
  1. ACETAMINOPHEN [Concomitant]
     Dosage: FORM: FILM-COATED TABLET
  2. ATENOLOL [Concomitant]
  3. PRAMIPEXOLE DIHYCHLLORIDE [Suspect]
     Dates: end: 20110714
  4. TRAMADOL HEXAL [Concomitant]
     Dosage: FORM: CAPSULE HARD
  5. FERROUS SULFATE TAB [Concomitant]
     Dosage: FORM: PROLONGED-RELEASE TABLET; STRENGTH: 100 MG FE2+
  6. BACLOFEN [Suspect]
     Dates: end: 20110714
  7. OXYCODONE HCL [Concomitant]
  8. BEHEPAN [Concomitant]
     Dosage: FORM: FILM-COATED TABLET
  9. ACETYLCYSTEIN MEDA [Concomitant]
     Dosage: 200 MG
  10. ENALAPRIL MALEATE [Concomitant]
  11. ALLOPURINOL [Concomitant]

REACTIONS (5)
  - HEART RATE DECREASED [None]
  - SLEEP APNOEA SYNDROME [None]
  - ORTHOSTATIC HYPOTENSION [None]
  - MUSCULAR WEAKNESS [None]
  - FALL [None]
